FAERS Safety Report 8596702-6 (Version None)
Quarter: 2012Q3

REPORT INFORMATION
  Report Type: 
  Country: None (occurrence: None)
  Receive Date: 20120815
  Receipt Date: 20120629
  Transmission Date: 20120928
  Serious: No
  Sender: FDA-Public Use
  Company Number: US-ASTRAZENECA-2012SE44627

PATIENT
  Age: 70 Year
  Sex: Female
  Weight: 84.8 kg

DRUGS (12)
  1. POTASSIUM CHLORIDE [Concomitant]
  2. LEXAPRO [Concomitant]
  3. METOPROLOL SUCCINATE [Concomitant]
  4. NEXIUM [Suspect]
     Indication: GASTROOESOPHAGEAL REFLUX DISEASE
     Route: 048
     Dates: start: 20110101
  5. FUROSEMIDE [Concomitant]
  6. PRAVASTATIN [Concomitant]
  7. NEURONTIN [Concomitant]
  8. ZANTAC [Concomitant]
     Indication: GASTROOESOPHAGEAL REFLUX DISEASE
  9. NORVASC [Concomitant]
     Route: 048
  10. LORTAB [Concomitant]
  11. MIRAPEX [Concomitant]
  12. ASPIRIN [Concomitant]

REACTIONS (5)
  - CHOKING SENSATION [None]
  - WEIGHT DECREASED [None]
  - DYSPNOEA [None]
  - REGURGITATION [None]
  - INTENTIONAL DRUG MISUSE [None]
